FAERS Safety Report 16468138 (Version 1)
Quarter: 2019Q2

REPORT INFORMATION
  Report Type: Report from Study
  Country: PK (occurrence: PK)
  Receive Date: 20190624
  Receipt Date: 20190624
  Transmission Date: 20190711
  Serious: Yes (Death)
  Sender: FDA-Public Use
  Company Number: PHHY2019PK143941

PATIENT
  Sex: Male
  Weight: 59 kg

DRUGS (1)
  1. GLIVEC [Suspect]
     Active Substance: IMATINIB MESYLATE
     Indication: CHRONIC MYELOID LEUKAEMIA
     Dosage: 4 DF, QD
     Route: 048
     Dates: start: 20181009

REACTIONS (3)
  - Chronic myeloid leukaemia [Fatal]
  - Haematemesis [Fatal]
  - Malignant neoplasm progression [Fatal]
